FAERS Safety Report 19686545 (Version 1)
Quarter: 2021Q3

REPORT INFORMATION
  Report Type: Spontaneous
  Country: FR (occurrence: FR)
  Receive Date: 20210811
  Receipt Date: 20210811
  Transmission Date: 20211014
  Serious: Yes (Other)
  Sender: FDA-Public Use
  Company Number: FR-BAYER-2021-188663

PATIENT
  Age: 46 Year
  Sex: Female

DRUGS (1)
  1. MIRENA [Suspect]
     Active Substance: LEVONORGESTREL
     Dosage: 20 ?G, CONT
     Route: 015
     Dates: start: 2018

REACTIONS (4)
  - Abdominal pain upper [None]
  - Amenorrhoea [None]
  - Device breakage [None]
  - Fungal infection [Recovered/Resolved]

NARRATIVE: CASE EVENT DATE: 2018
